FAERS Safety Report 4339322-1 (Version None)
Quarter: 2004Q2

REPORT INFORMATION
  Report Type: 
  Country: None (occurrence: None)
  Receive Date: 20040412
  Receipt Date: 19971014
  Transmission Date: 20050107
  Serious: Yes (Death, Life-Threatening, Hospitalization)
  Sender: FDA-Public Use
  Company Number: WAES 97101427

PATIENT
  Age: 3 Day
  Sex: Male

DRUGS (11)
  1. INDOCIN I.V. [Suspect]
     Indication: PATENT DUCTUS ARTERIOSUS
     Dosage: SEE IMAGE
     Route: 042
     Dates: start: 19970504, end: 19970504
  2. INDOCIN I.V. [Suspect]
     Indication: PATENT DUCTUS ARTERIOSUS
     Dosage: SEE IMAGE
     Route: 042
     Dates: start: 19970503, end: 19970504
  3. INDOCIN I.V. [Suspect]
     Indication: PATENT DUCTUS ARTERIOSUS
     Dosage: SEE IMAGE
     Route: 042
     Dates: start: 19970505, end: 19970505
  4. AMIKACIN [Concomitant]
  5. AMPICILLIN [Concomitant]
  6. CEFOTAXIME [Concomitant]
  7. DOBUTAMINE HCL [Concomitant]
  8. DOPAMINE HCL [Concomitant]
  9. EPINEPHRINE [Concomitant]
  10. FUROSEMIDE [Concomitant]
  11. PHENOBARBITAL TAB [Concomitant]

REACTIONS (7)
  - CARDIAC FAILURE [None]
  - CARDIAC FAILURE CONGESTIVE [None]
  - CONVULSION [None]
  - GENERAL PHYSICAL HEALTH DETERIORATION [None]
  - HAEMORRHAGE INTRACRANIAL [None]
  - RENAL FAILURE [None]
  - THROMBOCYTOPENIA [None]
